FAERS Safety Report 6131709-X (Version None)
Quarter: 2009Q1

REPORT INFORMATION
  Report Type: 
  Country: None (occurrence: None)
  Receive Date: 20090325
  Receipt Date: 20090319
  Transmission Date: 20090719
  Serious: Yes (Death)
  Sender: FDA-Public Use
  Company Number: US-ROCHE-616658

PATIENT
  Sex: Female
  Weight: 80.3 kg

DRUGS (6)
  1. BONIVA [Suspect]
     Indication: OSTEOPOROSIS
     Dosage: DOSE: 3 MG/ 3ML
     Route: 042
     Dates: start: 20081021
  2. DIOVAN [Concomitant]
     Indication: HYPERTENSION
     Dosage: DOSE: 160 DAILY
     Route: 048
     Dates: start: 20080701
  3. VESICARE [Concomitant]
     Dosage: DRUG: VESICAR; DOSE; 5 TAKEN DAILY
     Dates: start: 20080201
  4. VERAPAMIL [Concomitant]
     Indication: PALPITATIONS
     Dosage: DOSE 240 TAKEN DAILY
     Route: 048
     Dates: start: 20080701
  5. COREG [Concomitant]
     Indication: CORONARY ARTERY DISEASE
     Dosage: DOSE : 10 TAKEN DAILY
     Dates: start: 20080501
  6. SINGULAIR [Concomitant]
     Dosage: OTHER INDICATION: ASTHMA; DOSE: 10 TAKEN DAILY
     Route: 048
     Dates: start: 20080701

REACTIONS (1)
  - MYOCARDIAL INFARCTION [None]
